FAERS Safety Report 20181830 (Version 2)
Quarter: 2021Q4

REPORT INFORMATION
  Report Type: Spontaneous
  Country: US (occurrence: US)
  Receive Date: 20211214
  Receipt Date: 20211228
  Transmission Date: 20220303
  Serious: No
  Sender: FDA-Public Use
  Company Number: US-AMGEN-USASP2021195062

PATIENT
  Age: 46 Year
  Sex: Male
  Weight: 106.12 kg

DRUGS (7)
  1. ENBREL [Suspect]
     Active Substance: ETANERCEPT
     Indication: Rheumatoid arthritis
     Dosage: UNK
     Route: 065
     Dates: start: 2019
  2. ENBREL [Suspect]
     Active Substance: ETANERCEPT
     Indication: Ankylosing spondylitis
  3. HUMIRA [Suspect]
     Active Substance: ADALIMUMAB
     Indication: Ankylosing spondylitis
     Dosage: 40 MILLIGRAM, Q2WK
     Route: 058
     Dates: start: 2014, end: 2019
  4. HUMIRA [Suspect]
     Active Substance: ADALIMUMAB
     Indication: Rheumatoid arthritis
     Dosage: 40 MILLIGRAM, Q2WK
     Route: 058
     Dates: start: 2021, end: 20211015
  5. HUMIRA [Suspect]
     Active Substance: ADALIMUMAB
     Dosage: 40 MILLIGRAM, Q2WK
     Route: 058
     Dates: start: 20211130
  6. MODERNA COVID-19 VACCINE [Concomitant]
     Active Substance: ELASOMERAN
     Indication: COVID-19 immunisation
     Dosage: UNK 1 IN ONCE
     Route: 030
     Dates: start: 20210911
  7. MODERNA COVID-19 VACCINE [Concomitant]
     Active Substance: ELASOMERAN
     Dosage: UNK 1 IN ONCE
     Route: 030
     Dates: start: 20211008

REACTIONS (12)
  - Weight decreased [Not Recovered/Not Resolved]
  - Feeding disorder [Recovered/Resolved]
  - Feeling abnormal [Recovered/Resolved]
  - Drug ineffective [Unknown]
  - Insomnia [Recovered/Resolved]
  - Blister [Recovered/Resolved]
  - Hyperhidrosis [Unknown]
  - Vomiting [Recovered/Resolved]
  - Injection site pruritus [Unknown]
  - Injection site erythema [Unknown]
  - Peripheral swelling [Recovered/Resolved]
  - Intentional product misuse [Recovered/Resolved]

NARRATIVE: CASE EVENT DATE: 20190101
